FAERS Safety Report 13442709 (Version 1)
Quarter: 2017Q2

REPORT INFORMATION
  Report Type: Spontaneous
  Country: US (occurrence: US)
  Receive Date: 20170414
  Receipt Date: 20170414
  Transmission Date: 20170830
  Serious: No
  Sender: FDA-Public Use
  Company Number: US-PFIZER INC-2017157213

PATIENT
  Age: 62 Year
  Sex: Female

DRUGS (10)
  1. EFFEXOR [Suspect]
     Active Substance: VENLAFAXINE HYDROCHLORIDE
     Indication: DEPRESSION
     Dosage: UNK
  2. EFFEXOR [Suspect]
     Active Substance: VENLAFAXINE HYDROCHLORIDE
     Indication: APPETITE DISORDER
  3. VALIUM [Suspect]
     Active Substance: DIAZEPAM
     Indication: APPETITE DISORDER
  4. VALIUM [Suspect]
     Active Substance: DIAZEPAM
     Indication: ANXIETY
  5. VALIUM [Suspect]
     Active Substance: DIAZEPAM
     Indication: DEPRESSION
     Dosage: UNK
  6. VALIUM [Suspect]
     Active Substance: DIAZEPAM
     Indication: INITIAL INSOMNIA
  7. EFFEXOR [Suspect]
     Active Substance: VENLAFAXINE HYDROCHLORIDE
     Indication: ASTHENIA
  8. EFFEXOR [Suspect]
     Active Substance: VENLAFAXINE HYDROCHLORIDE
     Indication: INITIAL INSOMNIA
  9. EFFEXOR [Suspect]
     Active Substance: VENLAFAXINE HYDROCHLORIDE
     Indication: ANXIETY
  10. VALIUM [Suspect]
     Active Substance: DIAZEPAM
     Indication: ASTHENIA

REACTIONS (1)
  - Drug ineffective [Unknown]
